FAERS Safety Report 10985837 (Version 1)
Quarter: 2015Q1

REPORT INFORMATION
  Report Type: Spontaneous
  Country: US (occurrence: None)
  Receive Date: 20150309
  Receipt Date: 20150309
  Transmission Date: 20150721
  Serious: Yes (Other)
  Sender: FDA-Public Use
  Company Number: 1071805

PATIENT
  Age: 59 Year
  Sex: Female

DRUGS (1)
  1. BONIVA [Suspect]
     Active Substance: IBANDRONATE SODIUM
     Indication: OSTEOPOROSIS
     Dosage: INTRAVENOUS (NOT OTHERWISE SPECIFIED)

REACTIONS (6)
  - Osteonecrosis of jaw [None]
  - Pyrexia [None]
  - Pain in jaw [None]
  - Ear pain [None]
  - Osteoporosis [None]
  - Condition aggravated [None]
